FAERS Safety Report 4513251-2 (Version None)
Quarter: 2004Q4

REPORT INFORMATION
  Report Type: 
  Country: None (occurrence: None)
  Receive Date: 20041130
  Receipt Date: 20040903
  Transmission Date: 20050328
  Serious: Yes (Hospitalization)
  Sender: FDA-Public Use
  Company Number: JP-ROCHE-379643

PATIENT
  Age: 51 Year
  Sex: Female
  Weight: 61.6 kg

DRUGS (5)
  1. ROCEPHIN [Suspect]
     Dosage: ROUTE: DRIP
     Route: 050
     Dates: start: 20040806, end: 20040816
  2. STRONGER NEO-MINOPHAGEN C [Concomitant]
     Route: 042
     Dates: start: 20040811, end: 20040817
  3. VOLTAREN [Concomitant]
     Route: 054
     Dates: start: 20040813, end: 20040816
  4. MYCOSPOR [Concomitant]
     Route: 061
     Dates: start: 20040806, end: 20040816
  5. LAMISIL [Concomitant]
     Route: 061
     Dates: start: 20040806, end: 20040816

REACTIONS (14)
  - BLISTER [None]
  - CELLULITIS [None]
  - DIFFICULTY IN WALKING [None]
  - EPHELIDES [None]
  - ERYTHEMA [None]
  - LIVER DISORDER [None]
  - LYMPHOCYTE STIMULATION TEST POSITIVE [None]
  - NAIL INFECTION [None]
  - PAIN IN EXTREMITY [None]
  - PRURITUS [None]
  - PURPURA [None]
  - RASH PAPULAR [None]
  - TINEA PEDIS [None]
  - VIRAL RASH [None]
